FAERS Safety Report 8959931 (Version 4)
Quarter: 2013Q2

REPORT INFORMATION
  Report Type: Report from Study
  Country: US (occurrence: US)
  Receive Date: 20121211
  Receipt Date: 20130516
  Transmission Date: 20140414
  Serious: No
  Sender: FDA-Public Use
  Company Number: US-009507513-1208USA008092

PATIENT
  Age: 58 Year
  Sex: Male

DRUGS (6)
  1. BOCEPREVIR [Suspect]
     Indication: CHRONIC HEPATITIS C
     Dosage: UNK, TID
     Dates: start: 20120403, end: 20130314
  2. RIBAVIRIN [Suspect]
     Indication: CHRONIC HEPATITIS C
     Dosage: 1200 MG, QD
     Route: 048
     Dates: start: 20120310
  3. RIBAVIRIN [Suspect]
     Dosage: 600 MG, QD
     Route: 048
     Dates: start: 201205, end: 20130314
  4. PEGASYS [Suspect]
     Indication: CHRONIC HEPATITIS C
     Dosage: 180 MICROGRAM, QW
     Dates: start: 20120310
  5. PEGASYS [Suspect]
     Dosage: 135 MCG, QW
     Dates: start: 201205, end: 20130314
  6. ARANESP (DARBEPOETIN ALFA) [Suspect]
     Indication: CHRONIC HEPATITIS C
     Dosage: FOR EVERY 14DAYS
     Dates: start: 20120522

REACTIONS (14)
  - Urinary incontinence [Unknown]
  - Blood iron decreased [Unknown]
  - Renal pain [Unknown]
  - White blood cell count decreased [Unknown]
  - Pain [Unknown]
  - Back pain [Unknown]
  - Dehydration [Recovered/Resolved]
  - Eye pruritus [Unknown]
  - Parosmia [Unknown]
  - Haemoglobin decreased [Unknown]
  - Dysgeusia [Unknown]
  - Dysgeusia [Unknown]
  - Anaemia [Unknown]
  - Asthenia [Unknown]
